FAERS Safety Report 23353038 (Version 2)
Quarter: 2025Q2

REPORT INFORMATION
  Report Type: Spontaneous
  Country: US (occurrence: US)
  Receive Date: 20231230
  Receipt Date: 20250402
  Transmission Date: 20250717
  Serious: No
  Sender: SANOFI AVENTIS
  Company Number: US-SA-SAC20231225000255

PATIENT
  Age: 52 Year
  Sex: Male

DRUGS (1)
  1. DUPIXENT [Suspect]
     Active Substance: DUPILUMAB
     Indication: Chronic sinusitis
     Dosage: 300 MG, QOW
     Route: 058

REACTIONS (7)
  - Feeling hot [Unknown]
  - Hyperhidrosis [Unknown]
  - Malaise [Unknown]
  - Dizziness [Unknown]
  - Vertigo [Unknown]
  - Product use in unapproved indication [Unknown]
  - Intercepted product storage error [Unknown]
